FAERS Safety Report 10667794 (Version 1)
Quarter: 2014Q4

REPORT INFORMATION
  Report Type: Spontaneous
  Country: GB (occurrence: GB)
  Receive Date: 20141222
  Receipt Date: 20141222
  Transmission Date: 20150529
  Serious: Yes (Other)
  Sender: FDA-Public Use
  Company Number: GB-SA-2014SA175012

PATIENT
  Age: 51 Year
  Sex: Male
  Weight: 75 kg

DRUGS (3)
  1. PREDNISOLONE. [Concomitant]
     Active Substance: PREDNISOLONE
     Indication: ASTHMA
     Dosage: NORMALLY FOR SEVEN DAY PERIOD
     Route: 048
     Dates: start: 19900101, end: 20141204
  2. FEXOFENADINE [Suspect]
     Active Substance: FEXOFENADINE\FEXOFENADINE HYDROCHLORIDE
     Indication: ECZEMA
     Dosage: DOSE: HALF TABLET
     Route: 048
  3. FEXOFENADINE [Suspect]
     Active Substance: FEXOFENADINE\FEXOFENADINE HYDROCHLORIDE
     Indication: ECZEMA
     Route: 048
     Dates: start: 20130102, end: 20141204

REACTIONS (2)
  - Parosmia [Recovering/Resolving]
  - Withdrawal syndrome [Recovering/Resolving]
